FAERS Safety Report 21389076 (Version 1)
Quarter: 2022Q3

REPORT INFORMATION
  Report Type: Report from Study
  Country: IT (occurrence: IT)
  Receive Date: 20220929
  Receipt Date: 20220929
  Transmission Date: 20221027
  Serious: Yes (Hospitalization)
  Sender: FDA-Public Use
  Company Number: None

PATIENT
  Age: 19 Year
  Sex: Female

DRUGS (2)
  1. CLARITHROMYCIN [Suspect]
     Active Substance: CLARITHROMYCIN
     Indication: Tonsillitis
     Dosage: CLARITHROMYCIN 500 MG TAB, DURATION : 2 DAYS
     Dates: start: 20220822, end: 20220824
  2. BETAMETHASONE SODIUM PHOSPHATE [Concomitant]
     Active Substance: BETAMETHASONE SODIUM PHOSPHATE
     Indication: Tonsillitis
     Dosage: BENTELAN 1MG TABLET, DURATION :2 DAYS
     Dates: start: 20220822, end: 20220824

REACTIONS (3)
  - Oedema mouth [Recovered/Resolved]
  - Pharyngeal oedema [Recovering/Resolving]
  - Pyrexia [Recovered/Resolved]

NARRATIVE: CASE EVENT DATE: 20220825
